FAERS Safety Report 9928736 (Version 3)
Quarter: 2014Q1

REPORT INFORMATION
  Report Type: Report from Study
  Country: ES (occurrence: ES)
  Receive Date: 20140227
  Receipt Date: 20140304
  Transmission Date: 20141002
  Serious: Yes (Hospitalization)
  Sender: FDA-Public Use
  Company Number: ES-ALLERGAN-1400345US

PATIENT
  Age: 84 Year
  Sex: Female
  Weight: 61 kg

DRUGS (10)
  1. LUCENTIS [Suspect]
     Indication: RETINAL VEIN OCCLUSION
     Dosage: UNK
     Dates: start: 20131003, end: 20131003
  2. LUCENTIS [Suspect]
     Dosage: UNK
     Dates: start: 20130801, end: 20130801
  3. LUCENTIS [Suspect]
     Dosage: UNK
     Dates: start: 20130709, end: 20130709
  4. LUCENTIS [Suspect]
     Dosage: UNK
     Dates: start: 20130605, end: 20130605
  5. LUCENTIS [Suspect]
     Dosage: UNK
     Dates: start: 20130508, end: 20130508
  6. LUCENTIS [Suspect]
     Dosage: UNK
     Dates: start: 20130418, end: 20130418
  7. LUCENTIS [Suspect]
     Dosage: UNK
     Dates: start: 20130313, end: 20130313
  8. LUCENTIS [Suspect]
     Dosage: UNK
     Dates: start: 20130117, end: 20130117
  9. ENALAPRIL [Concomitant]
     Indication: HYPERTENSION
     Dosage: 1 DF (MG) DAILY
     Route: 048
     Dates: start: 2003, end: 20131222
  10. SIMVASTATIN [Concomitant]
     Indication: HYPERCHOLESTEROLAEMIA
     Dosage: 1 DF (MG) DAILY
     Route: 048
     Dates: start: 2003, end: 20131222

REACTIONS (1)
  - Myocardial infarction [Recovered/Resolved with Sequelae]
